FAERS Safety Report 5132569-6 (Version None)
Quarter: 2006Q4

REPORT INFORMATION
  Report Type: 
  Country: None (occurrence: None)
  Receive Date: 20061017
  Receipt Date: 20061002
  Transmission Date: 20070319
  Serious: Yes (Life-Threatening)
  Sender: FDA-Public Use
  Company Number: PHRM2006FR02615

PATIENT
  Age: 56 Year
  Sex: Female
  Weight: 116.9 kg

DRUGS (2)
  1. VISUDYNE [Suspect]
     Indication: CHOROIDAL NEOVASCULARISATION
     Dates: start: 20060522, end: 20060522
  2. VISUDYNE [Suspect]
     Indication: MYOPIA
     Dates: start: 20060522, end: 20060522

REACTIONS (6)
  - ANGIONEUROTIC OEDEMA [None]
  - EYELID OEDEMA [None]
  - MALAISE [None]
  - PALATAL OEDEMA [None]
  - RESPIRATORY DISORDER [None]
  - SWELLING FACE [None]
